FAERS Safety Report 10399735 (Version 1)
Quarter: 2014Q3

REPORT INFORMATION
  Report Type: Spontaneous
  Country: GB (occurrence: GB)
  Receive Date: 20140821
  Receipt Date: 20140821
  Transmission Date: 20150326
  Serious: Yes (Hospitalization, Other)
  Sender: FDA-Public Use
  Company Number: GB-TEVA-501870ISR

PATIENT
  Age: 86 Year
  Sex: Female
  Weight: 48.6 kg

DRUGS (7)
  1. FLUOXETINE [Concomitant]
     Active Substance: FLUOXETINE\FLUOXETINE HYDROCHLORIDE
     Dosage: 20 MILLIGRAM DAILY;
  2. SIMVASTATIN. [Concomitant]
     Active Substance: SIMVASTATIN
  3. LETROZOLE. [Concomitant]
     Active Substance: LETROZOLE
     Dosage: 2.5 MILLIGRAM DAILY;
  4. WARFARIN [Suspect]
     Active Substance: WARFARIN
     Indication: ATRIAL FIBRILLATION
     Dosage: VARIABLE ACCORDING TO INR
     Route: 048
     Dates: end: 20140703
  5. THIAMINE [Concomitant]
     Active Substance: THIAMINE
     Dosage: 200 MILLIGRAM DAILY;
  6. VITAMIN B COMPLEX STRONG [Concomitant]
  7. DIGOXIN. [Suspect]
     Active Substance: DIGOXIN
     Indication: ATRIAL FIBRILLATION
     Dosage: 125MICROGRAMS - 250 MICROGRAMS
     Route: 048
     Dates: start: 200701, end: 20140703

REACTIONS (8)
  - Toxicity to various agents [Recovered/Resolved]
  - Dehydration [Unknown]
  - Drug prescribing error [Unknown]
  - Eating disorder [Unknown]
  - Toxicity to various agents [Unknown]
  - International normalised ratio increased [Recovered/Resolved]
  - Renal failure acute [Unknown]
  - Ascites [Unknown]

NARRATIVE: CASE EVENT DATE: 20140703
